FAERS Safety Report 6164338-2 (Version None)
Quarter: 2009Q2

REPORT INFORMATION
  Report Type: 
  Country: None (occurrence: None)
  Receive Date: 20090422
  Receipt Date: 20090417
  Transmission Date: 20091009
  Serious: Yes (Hospitalization)
  Sender: FDA-Public Use
  Company Number: TR-BRISTOL-MYERS SQUIBB COMPANY-14591325

PATIENT
  Age: 49 Year
  Sex: Male
  Weight: 68 kg

DRUGS (1)
  1. SPRYCEL [Suspect]
     Dosage: INTERRUPTED ON 09APR09 .INITIAL DOSE 50 MG*2/DAY. IN 2008 DOSE INCREASED TO 70 MG*2/DAY
     Route: 048
     Dates: start: 20070501

REACTIONS (3)
  - PLEURAL EFFUSION [None]
  - PULMONARY HYPERTENSION [None]
  - TRICUSPID VALVE INCOMPETENCE [None]
